FAERS Safety Report 6762996-2 (Version None)
Quarter: 2010Q2

REPORT INFORMATION
  Report Type: 
  Country: None (occurrence: None)
  Receive Date: 20100609
  Receipt Date: 20100528
  Transmission Date: 20101027
  Serious: Yes (Other)
  Sender: FDA-Public Use
  Company Number: US-PFIZER INC-2010068202

PATIENT
  Sex: Female
  Weight: 53.061 kg

DRUGS (3)
  1. CHANTIX [Suspect]
     Indication: SMOKING CESSATION THERAPY
     Dosage: 0.5 MG, DAILY
     Route: 048
     Dates: start: 20100401, end: 20100501
  2. CELEXA [Suspect]
     Indication: ANXIETY
     Dosage: 20 MG, DAILY
     Dates: end: 20100501
  3. SYNTHROID [Concomitant]
     Indication: THYROID DISORDER

REACTIONS (10)
  - ABNORMAL DREAMS [None]
  - ANGER [None]
  - CONFUSIONAL STATE [None]
  - DEPRESSED MOOD [None]
  - FEELING ABNORMAL [None]
  - HOSTILITY [None]
  - IMPAIRED WORK ABILITY [None]
  - IMPATIENCE [None]
  - MEMORY IMPAIRMENT [None]
  - MENTAL DISORDER [None]
